FAERS Safety Report 24455390 (Version 2)
Quarter: 2024Q4

REPORT INFORMATION
  Report Type: Report from Study
  Country: US (occurrence: US)
  Receive Date: 20241017
  Receipt Date: 20241018
  Transmission Date: 20250114
  Serious: No
  Sender: ROCHE
  Company Number: US-ROCHE-3492656

PATIENT
  Age: 75 Year
  Sex: Female

DRUGS (14)
  1. RITUXAN [Suspect]
     Active Substance: RITUXIMAB
     Indication: Rheumatoid arthritis
     Dosage: INFUSE 1000 MG DAY 1 DAY 15 REPEAT 4-6 MONTHS PRN?DATE OF TREATMENT: 20/JUN/2018, 06/JUL/2018, 08/MA
     Route: 041
     Dates: start: 201703, end: 20230510
  2. RITUXAN [Suspect]
     Active Substance: RITUXIMAB
     Indication: Rheumatoid arthritis
  3. CELEBREX [Concomitant]
     Active Substance: CELECOXIB
  4. FOLIC ACID [Concomitant]
     Active Substance: FOLIC ACID
  5. METHOTREXATE [Concomitant]
     Active Substance: METHOTREXATE
  6. OMEPRAZOLE [Concomitant]
     Active Substance: OMEPRAZOLE
  7. ATENOLOL [Concomitant]
     Active Substance: ATENOLOL
  8. CALCIUM CARBONATE\VITAMIN D [Concomitant]
     Active Substance: CALCIUM CARBONATE\VITAMIN D
  9. COUMADIN [Concomitant]
     Active Substance: WARFARIN SODIUM
  10. IRON [Concomitant]
     Active Substance: IRON
  11. REFRESH CLASSIC LUBRICANT EYE DROPS [Concomitant]
  12. TRIAMCINOLONE [Concomitant]
     Active Substance: TRIAMCINOLONE
  13. TUMS [Concomitant]
     Active Substance: CALCIUM CARBONATE
  14. ZYRTEC [Concomitant]
     Active Substance: CETIRIZINE HYDROCHLORIDE

REACTIONS (2)
  - Arthropod bite [Unknown]
  - Babesiosis [Unknown]

NARRATIVE: CASE EVENT DATE: 20230101
